FAERS Safety Report 13436173 (Version 3)
Quarter: 2017Q2

REPORT INFORMATION
  Report Type: Spontaneous
  Country: US (occurrence: US)
  Receive Date: 20170413
  Receipt Date: 20170612
  Transmission Date: 20170830
  Serious: Yes (Other)
  Sender: FDA-Public Use
  Company Number: US-VERTEX PHARMACEUTICALS-2017-001929

PATIENT
  Age: 30 Year
  Sex: Female

DRUGS (19)
  1. ORKAMBI [Suspect]
     Active Substance: IVACAFTOR\LUMACAFTOR
     Indication: CYSTIC FIBROSIS
     Dosage: 200MG/125MG, BID
     Route: 048
     Dates: start: 20160914, end: 20170405
  2. LAMOTRIGINE. [Concomitant]
     Active Substance: LAMOTRIGINE
  3. BUSPIRONE [Concomitant]
     Active Substance: BUSPIRONE HYDROCHLORIDE
  4. LORAZEPAM. [Concomitant]
     Active Substance: LORAZEPAM
  5. LEVOTHYROXINE. [Concomitant]
     Active Substance: LEVOTHYROXINE
  6. ACYCLOVIR. [Concomitant]
     Active Substance: ACYCLOVIR
  7. AZITHROMYCIN ANHYDROUS. [Concomitant]
     Active Substance: AZITHROMYCIN ANHYDROUS
  8. FLUCONAZOLE. [Concomitant]
     Active Substance: FLUCONAZOLE
  9. VITAMIN D2 [Concomitant]
     Active Substance: ERGOCALCIFEROL
  10. OMEPRAZOLE. [Concomitant]
     Active Substance: OMEPRAZOLE
  11. WARFARIN [Concomitant]
     Active Substance: WARFARIN
  12. FOLIC ACID. [Concomitant]
     Active Substance: FOLIC ACID
  13. TOPIRAMATE. [Concomitant]
     Active Substance: TOPIRAMATE
  14. TRAMADOL. [Concomitant]
     Active Substance: TRAMADOL
  15. PROAIR HFA [Concomitant]
     Active Substance: ALBUTEROL SULFATE
     Route: 055
  16. PHENADOZ [Concomitant]
     Active Substance: PROMETHAZINE HYDROCHLORIDE
  17. CYCLOBENZAPRINE. [Concomitant]
     Active Substance: CYCLOBENZAPRINE
  18. ARIPIPRAZOLE. [Concomitant]
     Active Substance: ARIPIPRAZOLE
  19. AQUADEKS [Concomitant]
     Active Substance: MINERALS\VITAMINS

REACTIONS (4)
  - Haemoptysis [Unknown]
  - Muscle strain [Unknown]
  - Cough [Not Recovered/Not Resolved]
  - Chest pain [Unknown]

NARRATIVE: CASE EVENT DATE: 201703
